FAERS Safety Report 6870634-3 (Version None)
Quarter: 2010Q3

REPORT INFORMATION
  Report Type: 
  Country: None (occurrence: None)
  Receive Date: 20100723
  Receipt Date: 20100709
  Transmission Date: 20110219
  Serious: Yes (Other)
  Sender: FDA-Public Use
  Company Number: PHHY2010US45802

PATIENT
  Sex: Male

DRUGS (6)
  1. GENTEAL (NVO) [Suspect]
  2. LYRICA [Concomitant]
     Dosage: 100 MG
  3. LEXAPRO [Concomitant]
     Dosage: 10 MG
  4. ADAVIN [Concomitant]
     Dosage: 1 MG
  5. WARFARIN SODIUM [Concomitant]
     Dosage: 7.5 MG
  6. XALATAN [Concomitant]

REACTIONS (2)
  - HALLUCINATION [None]
  - VISUAL IMPAIRMENT [None]
